FAERS Safety Report 4307901-3 (Version None)
Quarter: 2004Q1

REPORT INFORMATION
  Report Type: 
  Country: None (occurrence: None)
  Receive Date: 20040226
  Receipt Date: 20030314
  Transmission Date: 20041129
  Serious: Yes (Hospitalization, Other)
  Sender: FDA-Public Use
  Company Number: 2003145065US

PATIENT
  Age: 64 Year
  Sex: Male
  Weight: 117.9 kg

DRUGS (7)
  1. CELEBREX [Suspect]
     Indication: LOCALISED OSTEOARTHRITIS
     Dosage: 200 MG QD ORAL
     Route: 048
     Dates: end: 20030123
  2. ATROVENT [Concomitant]
  3. SEREVENT [Concomitant]
  4. LOPRESSOR [Concomitant]
  5. AVALIDE [Concomitant]
  6. QUININE SULFATE [Concomitant]
  7. LOPERAMIDE HCL [Concomitant]

REACTIONS (3)
  - CONDITION AGGRAVATED [None]
  - HYPERTENSION [None]
  - MYOCARDIAL INFARCTION [None]
